FAERS Safety Report 4353701-8 (Version None)
Quarter: 2004Q2

REPORT INFORMATION
  Report Type: 
  Country: None (occurrence: None)
  Receive Date: 20040430
  Receipt Date: 20040421
  Transmission Date: 20050107
  Serious: Yes (Other)
  Sender: FDA-Public Use
  Company Number: SE-JNJFOC-20040403633

PATIENT
  Age: 54 Year
  Sex: Female

DRUGS (11)
  1. REMICADE [Suspect]
     Indication: RHEUMATOID ARTHRITIS
     Dosage: 200 MG, INTRAVENOUS
     Route: 042
     Dates: start: 20010101
  2. PREDNISOLONE [Concomitant]
  3. URSO FALK [Concomitant]
  4. DIPENTUM [Concomitant]
  5. SPIRONOLACTONE [Concomitant]
  6. INDERAL [Concomitant]
  7. TAVEGYL (CLEMASTINE) [Concomitant]
  8. OPTINATE (RISEDRONATE SODIUM) [Concomitant]
  9. CALCIPOT D (CALCIPOT D3) [Concomitant]
  10. E-VIMIN (TOCOPHERYL ACETATE) [Concomitant]
  11. INSULIN [Concomitant]

REACTIONS (6)
  - ARTHRALGIA [None]
  - BACK PAIN [None]
  - MYALGIA [None]
  - PAIN [None]
  - PELVIC PAIN [None]
  - TYPE IV HYPERSENSITIVITY REACTION [None]
